FAERS Safety Report 5136735-5 (Version None)
Quarter: 2006Q4

REPORT INFORMATION
  Report Type: 
  Country: None (occurrence: None)
  Receive Date: 20061023
  Receipt Date: 20061012
  Transmission Date: 20070319
  Serious: Yes (Hospitalization)
  Sender: FDA-Public Use
  Company Number: 2006AL003170

PATIENT
  Age: 73 Year
  Sex: Female

DRUGS (7)
  1. FLUOXETINE [Suspect]
     Indication: DEPRESSION
  2. EFFEXOR [Concomitant]
  3. MIRTAZAPINE [Concomitant]
  4. CODEINE [Concomitant]
  5. LOPRAZOLAM [Concomitant]
  6. ACETAMINOPHEN [Concomitant]
  7. PROMAZINE HYDROCHLORIDE [Concomitant]

REACTIONS (6)
  - CONTUSION [None]
  - CONVULSION [None]
  - DEAFNESS UNILATERAL [None]
  - DISORIENTATION [None]
  - FALL [None]
  - LOSS OF CONSCIOUSNESS [None]
